FAERS Safety Report 6111519 (Version 2)
Quarter: 2019Q1

REPORT INFORMATION
  Report Type: Spontaneous
  Country: FR (occurrence: FR)
  Receive Date: 20060821
  Receipt Date: 20190201
  Transmission Date: 20190418
  Serious: Yes (Hospitalization, Other)
  Sender: FDA-Public Use
  Company Number: FR-GILEAD-2006-0010025

PATIENT
  Age: 41 Year
  Sex: Female

DRUGS (9)
  1. VIREAD [Suspect]
     Active Substance: TENOFOVIR DISOPROXIL FUMARATE
     Indication: HIV INFECTION
     Route: 048
     Dates: start: 20030615, end: 20060322
  2. VIDEX [Suspect]
     Active Substance: DIDANOSINE
     Indication: HIV INFECTION
     Route: 048
     Dates: start: 20030615, end: 20060322
  3. VIRAMUNE [Suspect]
     Active Substance: NEVIRAPINE
     Indication: HEPATITIS C
  4. SERETIDE [Concomitant]
     Active Substance: FLUTICASONE PROPIONATE\SALMETEROL XINAFOATE
     Indication: ASTHMA
  5. VIREAD [Suspect]
     Active Substance: TENOFOVIR DISOPROXIL FUMARATE
     Indication: HEPATITIS C
  6. ZITHROMAX [Concomitant]
     Active Substance: AZITHROMYCIN DIHYDRATE
     Indication: BRONCHOPULMONARY ASPERGILLOSIS ALLERGIC
  7. VIDEX [Suspect]
     Active Substance: DIDANOSINE
     Indication: HEPATITIS C
  8. VIRAMUNE [Suspect]
     Active Substance: NEVIRAPINE
     Indication: HIV INFECTION
     Route: 048
     Dates: end: 20060322
  9. VFEND [Concomitant]
     Active Substance: VORICONAZOLE

REACTIONS (1)
  - Impaired gastric emptying [Recovering/Resolving]
